FAERS Safety Report 7651579-8 (Version None)
Quarter: 2011Q3

REPORT INFORMATION
  Report Type: 
  Country: None (occurrence: None)
  Receive Date: 20110802
  Receipt Date: 20110802
  Transmission Date: 20111222
  Serious: Yes (Other)
  Sender: FDA-Public Use
  Company Number: PHHO2006GB19877

PATIENT
  Sex: Female
  Weight: 63.33 kg

DRUGS (2)
  1. ZOLEDRONOC ACID [Suspect]
     Indication: OSTEOPOROSIS POSTMENOPAUSAL
     Dosage: 5 MG
     Route: 042
  2. LESCOL [Suspect]
     Indication: OSTEOPOROSIS POSTMENOPAUSAL
     Dosage: DOUBLE BLIND
     Route: 048
     Dates: start: 20061115, end: 20061117

REACTIONS (13)
  - EYE PAIN [None]
  - EYE PRURITUS [None]
  - INTRAOCULAR PRESSURE INCREASED [None]
  - DEAFNESS [None]
  - TINNITUS [None]
  - PHOTOPSIA [None]
  - UVEITIS [None]
  - PHOTOPHOBIA [None]
  - DIZZINESS [None]
  - HEADACHE [None]
  - EYE INFLAMMATION [None]
  - OCULAR HYPERAEMIA [None]
  - EYE IRRITATION [None]
